FAERS Safety Report 8737869 (Version 4)
Quarter: 2013Q2

REPORT INFORMATION
  Report Type: Report from Study
  Country: JP (occurrence: JP)
  Receive Date: 20120823
  Receipt Date: 20130605
  Transmission Date: 20140414
  Serious: Yes (Disabling, Other)
  Sender: FDA-Public Use
  Company Number: JP-MERCK-2012SP034180

PATIENT
  Age: 35 Year
  Sex: Female
  Weight: 57 kg

DRUGS (20)
  1. PEGINTRON [Suspect]
     Indication: CHRONIC HEPATITIS C
     Dosage: 1.5 MICROGRAM PER KILOGRAM, QW
     Route: 058
     Dates: start: 20120409, end: 20120409
  2. PEGINTRON [Suspect]
     Dosage: 0.75 MICROGRAM PER KILOGRAM, QW
     Route: 058
     Dates: start: 20120416, end: 20120501
  3. PEGINTRON [Suspect]
     Dosage: 1.5 MICROGRAM PER KILOGRAM, QW
     Route: 058
     Dates: start: 20120507, end: 20120507
  4. PEGINTRON [Suspect]
     Dosage: 50 MICROGRAM, QW
     Route: 058
     Dates: start: 20120526, end: 20120604
  5. REBETOL [Suspect]
     Indication: CHRONIC HEPATITIS C
     Dosage: 600 MG, QD
     Route: 048
     Dates: start: 20120409, end: 20120508
  6. REBETOL [Suspect]
     Dosage: 400 MG, QD
     Route: 048
     Dates: start: 20120526, end: 20120605
  7. TELAVIC [Suspect]
     Indication: CHRONIC HEPATITIS C
     Dosage: 2250 MG, QD
     Route: 048
     Dates: start: 20120409, end: 20120413
  8. TELAVIC [Suspect]
     Dosage: 1500 MG, QD
     Route: 048
     Dates: start: 20120414, end: 20120501
  9. TELAVIC [Suspect]
     Dosage: 2250 MG, QD
     Route: 048
     Dates: start: 20120502, end: 20120508
  10. TELAVIC [Suspect]
     Dosage: 2250 MG, QD
     Route: 048
     Dates: start: 20120526, end: 20120604
  11. TELAVIC [Suspect]
     Dosage: 1500 MG, QD
     Route: 048
     Dates: start: 20120605, end: 20120605
  12. LAC-B [Concomitant]
     Indication: DIARRHOEA
     Dosage: 3 G, QD
     Route: 048
     Dates: end: 20120508
  13. LAC-B [Concomitant]
     Dosage: 3 G, QD
     Route: 048
     Dates: start: 20120606, end: 20120620
  14. SHAKUYAKU-KANZO-TO [Concomitant]
     Indication: MUSCLE SPASMS
     Dosage: 7.5 G, QD
     Route: 048
     Dates: end: 20120508
  15. THREENOFEN [Concomitant]
     Indication: PROPHYLAXIS
     Dosage: 60 MG/DAY, AS NEEDED
     Route: 048
     Dates: start: 20120524, end: 20120620
  16. EVAMYL [Concomitant]
     Indication: INSOMNIA
     Dosage: 1MG/DAY,AS NEEDED
     Route: 048
     Dates: start: 20120526
  17. EVAMYL [Concomitant]
     Dosage: 1 MG, QD
     Route: 048
     Dates: end: 20120716
  18. PRIMPERAN [Concomitant]
     Indication: PROPHYLAXIS
     Dosage: 15 MG, QD
     Route: 048
     Dates: start: 20120526, end: 20120620
  19. SALOBEL [Concomitant]
     Indication: PROPHYLAXIS
     Dosage: 200 MG, QD
     Route: 048
     Dates: start: 20120526, end: 20120620
  20. CRAVIT [Concomitant]
     Indication: PROPHYLAXIS
     Dosage: 500 MG, QD
     Route: 048
     Dates: start: 20120608, end: 20120613

REACTIONS (5)
  - Neutrophil count decreased [Not Recovered/Not Resolved]
  - White blood cell count decreased [Not Recovered/Not Resolved]
  - Haemoglobin decreased [Recovered/Resolved]
  - Pancytopenia [Recovered/Resolved]
  - Neutrophil count decreased [Recovered/Resolved]
